FAERS Safety Report 8911624 (Version 1)
Quarter: 2012Q4

REPORT INFORMATION
  Report Type: 
  Country: US (occurrence: US)
  Receive Date: 20121116
  Receipt Date: 20121116
  Transmission Date: 20130627
  Serious: Yes (Hospitalization)
  Sender: FDA-Public Use
  Company Number: US-BAYER-2012-118003

PATIENT
  Age: 19 Year
  Sex: Female
  Weight: 83.9 kg

DRUGS (7)
  1. YAZ [Suspect]
  2. YASMIN [Suspect]
     Indication: MENSTRUAL CYCLE MANAGEMENT
  3. EFFEXOR [Concomitant]
     Indication: ANXIETY
     Dosage: 150 mg, QD
     Route: 048
     Dates: start: 20071003
  4. EFFEXOR [Concomitant]
     Indication: PANIC ATTACKS
  5. KLONOPIN [Concomitant]
     Indication: ANXIETY
     Dosage: .5 mg, PRN
     Dates: start: 20071003
  6. KLONOPIN [Concomitant]
     Indication: PANIC ATTACKS
  7. FEMCON FE [Concomitant]
     Dosage: UNK
     Dates: start: 20070907

REACTIONS (2)
  - Pulmonary embolism [None]
  - Off label use [None]
